FAERS Safety Report 6108322-3 (Version None)
Quarter: 2009Q1

REPORT INFORMATION
  Report Type: 
  Country: None (occurrence: None)
  Receive Date: 20090309
  Receipt Date: 20090226
  Transmission Date: 20090719
  Serious: Yes (Hospitalization, Other)
  Sender: FDA-Public Use
  Company Number: KR-ROCHE-617179

PATIENT
  Sex: Female
  Weight: 59.6 kg

DRUGS (11)
  1. METHOXY POLYETHYLENE GLYCOL-EPOETIN BETA [Suspect]
     Dosage: DOSAGE FORM: INJECTABLE SOLUTION. DATE OF LAST DOSE PRIOR TO SAE: 11 FEB 2009
     Route: 042
     Dates: start: 20081022
  2. RENALMIN [Concomitant]
     Dosage: TOTAL DAILY DOSE: 1 TABLET
     Dates: start: 20080527
  3. ASPIRIN 10GR TIMED DISINTEGRATION TAB [Concomitant]
     Dosage: DRUG: ASPIRIN ENTERIC COATED PELLET FORM: PELLET
     Dates: start: 20071121
  4. ACETAMINOPHEN [Concomitant]
     Dosage: DRUG: ACETAMMOPHEN ENCAPSULATED
     Dates: start: 20071119
  5. FERROUS SULFATE TAB [Concomitant]
     Dates: start: 20080527
  6. PARICALCITOL [Concomitant]
     Dates: start: 20080903
  7. FUROSEMIDE [Concomitant]
     Dates: start: 20031211
  8. ATORVASTATIN CALCIUM [Concomitant]
     Dates: start: 20080711
  9. MANNITOL 20% [Concomitant]
  10. CLOPIDOGREL [Concomitant]
     Dates: start: 20090209
  11. METOPROLOL TARTRATE [Concomitant]
     Dates: start: 20090209

REACTIONS (2)
  - GASTRIC ULCER [None]
  - HAEMATEMESIS [None]
